FAERS Safety Report 8869096 (Version 1)
Quarter: 2012Q4

REPORT INFORMATION
  Report Type: Spontaneous
  Country: LK (occurrence: None)
  Receive Date: 20121024
  Receipt Date: 20121024
  Transmission Date: 20130627
  Serious: Yes (Other)
  Sender: FDA-Public Use
  Company Number: AUR-APL-2012-04547

PATIENT
  Age: 12 Year
  Sex: Male

DRUGS (2)
  1. RISPERIDONE [Suspect]
     Indication: TOURETTE^S SYNDROME
  2. HALOPERIDOL [Suspect]
     Indication: TOURETTE^S SYNDROME

REACTIONS (10)
  - Drug ineffective [None]
  - Attention deficit/hyperactivity disorder [None]
  - Obsessive-compulsive disorder [None]
  - Compulsions [None]
  - Reading disorder [None]
  - Cognitive disorder [None]
  - Expressive language disorder [None]
  - Hyperphagia [None]
  - Impulsive behaviour [None]
  - No therapeutic response [None]
